FAERS Safety Report 23296937 (Version 4)
Quarter: 2025Q2

REPORT INFORMATION
  Report Type: Spontaneous
  Country: US (occurrence: US)
  Receive Date: 20231214
  Receipt Date: 20250616
  Transmission Date: 20250716
  Serious: No
  Sender: SANOFI AVENTIS
  Company Number: US-SA-SAC20231211000900

PATIENT
  Age: 54 Year
  Sex: Female
  Weight: 68.18 kg

DRUGS (11)
  1. DUPIXENT [Suspect]
     Active Substance: DUPILUMAB
     Indication: Asthma
     Dosage: 300 MG, QOW
     Route: 058
  2. LETROZOLE [Concomitant]
     Active Substance: LETROZOLE
  3. HYDROXYCHLOROQUINE SULFATE [Concomitant]
     Active Substance: HYDROXYCHLOROQUINE SULFATE
  4. LEVOTHYROXINE SODIUM [Concomitant]
     Active Substance: LEVOTHYROXINE SODIUM
  5. ORENCIA [Concomitant]
     Active Substance: ABATACEPT
  6. CALCIUM [Concomitant]
     Active Substance: CALCIUM
  7. OCUVITE EYE HEALTH [Concomitant]
  8. PREDNISONE [Concomitant]
     Active Substance: PREDNISONE
  9. VITAMIN D [Concomitant]
     Active Substance: VITAMIN D NOS
  10. FISH OIL [Concomitant]
     Active Substance: FISH OIL
  11. LOSARTAN POTASSIUM [Concomitant]
     Active Substance: LOSARTAN POTASSIUM

REACTIONS (7)
  - Malaise [Unknown]
  - Pain [Unknown]
  - Blood glucose increased [Unknown]
  - Blood pressure increased [Unknown]
  - Dizziness [Unknown]
  - Arthralgia [Unknown]
  - Asthma [Unknown]

NARRATIVE: CASE EVENT DATE: 20250609
